FAERS Safety Report 8607957-3 (Version None)
Quarter: 2012Q3

REPORT INFORMATION
  Report Type: 
  Country: None (occurrence: None)
  Receive Date: 20120821
  Receipt Date: 20120807
  Transmission Date: 20120928
  Serious: Yes (Other)
  Sender: FDA-Public Use
  Company Number: GB-RANBAXY-2012RR-58990

PATIENT
  Age: 68 Year
  Sex: Female

DRUGS (8)
  1. BISOPROLOL FUMARATE [Suspect]
     Indication: PRODUCT USED FOR UNKNOWN INDICATION
     Dosage: UNK
     Route: 065
     Dates: end: 20120524
  2. BISOPROLOL FUMARATE [Suspect]
     Dosage: UNK
     Route: 065
  3. TREDAPTIVE [Concomitant]
     Indication: BLOOD CHOLESTEROL INCREASED
     Dosage: UNK, QD
     Route: 048
     Dates: start: 20120105
  4. CARVEDILOL [Suspect]
     Indication: PRODUCT USED FOR UNKNOWN INDICATION
     Dosage: UNK
     Route: 065
     Dates: start: 20120524
  5. ASPIRIN [Concomitant]
     Indication: PRODUCT USED FOR UNKNOWN INDICATION
     Dosage: 75 MG, QD
     Route: 065
  6. CLOPIDEGREL [Concomitant]
     Indication: MYOCARDIAL INFARCTION
     Dosage: 75 MG, QD
     Route: 048
     Dates: start: 20111110
  7. BISOPROLOL FUMARATE [Suspect]
     Indication: MYOCARDIAL INFARCTION
     Dosage: 1.25 MG, QD
     Route: 065
     Dates: end: 20120524
  8. COSARTAN [Concomitant]
     Indication: BLOOD PRESSURE
     Dosage: 12.5 MG, QD
     Route: 065

REACTIONS (5)
  - WAIST CIRCUMFERENCE INCREASED [None]
  - WEIGHT INCREASED [None]
  - SLEEP DISORDER [None]
  - FATIGUE [None]
  - URINARY TRACT INFECTION [None]
